FAERS Safety Report 8350850 (Version 8)
Quarter: 2014Q3

REPORT INFORMATION
  Report Type: Report from Study
  Country: BE (occurrence: BE)
  Receive Date: 20120124
  Receipt Date: 20140723
  Transmission Date: 20150326
  Serious: Yes (Other)
  Sender: FDA-Public Use
  Company Number: BE-MILLENNIUM PHARMACEUTICALS, INC.-2012-00439

PATIENT

DRUGS (7)
  1. VELCADE [Suspect]
     Active Substance: BORTEZOMIB
     Dosage: 2.17 MG, UNK
     Route: 065
     Dates: start: 20140321
  2. VELCADE [Suspect]
     Active Substance: BORTEZOMIB
     Indication: PRODUCT USED FOR UNKNOWN INDICATION
     Dosage: UNK MG, UNK
     Route: 065
     Dates: start: 20111107, end: 20111117
  3. VELCADE [Suspect]
     Active Substance: BORTEZOMIB
     Dosage: 2.12 MG, UNK
     Route: 065
     Dates: start: 20140325, end: 20140328
  4. VELCADE [Suspect]
     Active Substance: BORTEZOMIB
     Dosage: 2.12 MG, UNK
     Route: 065
     Dates: start: 20140418
  5. VELCADE [Suspect]
     Active Substance: BORTEZOMIB
     Dosage: UNK
     Route: 065
     Dates: start: 20140715
  6. VELCADE [Suspect]
     Active Substance: BORTEZOMIB
     Dosage: 2.15 MG, UNK
     Dates: start: 20140603
  7. LITICAN                            /00690801/ [Concomitant]
     Dosage: 2 UNK, UNK

REACTIONS (18)
  - Depression [Unknown]
  - Diarrhoea [Recovering/Resolving]
  - Pyrexia [Unknown]
  - Dizziness [Unknown]
  - Asthenia [Unknown]
  - Haemorrhage [Unknown]
  - Contusion [Unknown]
  - Injection site vesicles [Unknown]
  - Constipation [Recovered/Resolved]
  - Confusional state [Unknown]
  - Headache [Recovered/Resolved]
  - Rash [Unknown]
  - Back pain [Unknown]
  - Cough [Unknown]
  - Fatigue [Unknown]
  - Dyspnoea [Unknown]
  - Haemorrhage [Recovered/Resolved]
  - Nausea [Recovered/Resolved]

NARRATIVE: CASE EVENT DATE: 20111114
